FAERS Safety Report 7235520-8 (Version None)
Quarter: 2011Q1

REPORT INFORMATION
  Report Type: 
  Country: None (occurrence: None)
  Receive Date: 20110120
  Receipt Date: 20110110
  Transmission Date: 20110831
  Serious: Yes (Other)
  Sender: FDA-Public Use
  Company Number: PHHY2010US62478

PATIENT

DRUGS (2)
  1. TEGRETOL-XR [Suspect]
     Dosage: 100 MG, BID
  2. TEGRETOL-XR [Suspect]
     Indication: EPILEPSY
     Dosage: 400 MG, BID
     Route: 048

REACTIONS (5)
  - EPILEPSY [None]
  - METABOLIC DISORDER [None]
  - MEMORY IMPAIRMENT [None]
  - DRUG INEFFECTIVE [None]
  - COELIAC DISEASE [None]
